FAERS Safety Report 9230195 (Version 1)
Quarter: 2013Q2

REPORT INFORMATION
  Report Type: Report from Study
  Country: CA (occurrence: CA)
  Receive Date: 20130415
  Receipt Date: 20130415
  Transmission Date: 20140414
  Serious: Yes (Other)
  Sender: FDA-Public Use
  Company Number: CA-JNJFOC-20130403567

PATIENT
  Age: 44 Year
  Sex: Male
  Weight: 107 kg

DRUGS (9)
  1. REMICADE [Suspect]
     Indication: CROHN^S DISEASE
     Route: 042
     Dates: start: 200903
  2. MTX [Concomitant]
     Route: 065
  3. FOLIC ACID [Concomitant]
     Route: 048
  4. SYMBICORT [Concomitant]
     Route: 065
  5. VENTOLIN [Concomitant]
     Route: 065
  6. PREDNISONE [Concomitant]
     Route: 048
  7. MELOXICAM [Concomitant]
     Route: 065
  8. REACTINE [Concomitant]
     Indication: MULTIPLE ALLERGIES
     Route: 048
  9. RABEPRAZOLE [Concomitant]
     Indication: GASTROOESOPHAGEAL REFLUX DISEASE
     Route: 065

REACTIONS (1)
  - Cataract [Recovering/Resolving]
